FAERS Safety Report 7766071-X (Version None)
Quarter: 2011Q3

REPORT INFORMATION
  Report Type: 
  Country: None (occurrence: None)
  Receive Date: 20110921
  Receipt Date: 20110909
  Transmission Date: 20111222
  Serious: Yes (Other)
  Sender: FDA-Public Use
  Company Number: PHEH2009US01399

PATIENT
  Sex: Female
  Weight: 67.574 kg

DRUGS (20)
  1. ZOMETA [Suspect]
     Indication: MULTIPLE MYELOMA
     Dosage: 4 MG, QMO
     Route: 041
     Dates: start: 20070413, end: 20071001
  2. ASPIRIN [Concomitant]
  3. XALATAN [Concomitant]
  4. ITRACONAZOLE [Concomitant]
  5. CHEMOTHERAPEUTICS NOS [Concomitant]
  6. TIMOLOL MALEATE [Concomitant]
  7. FLUTICASONE PROPIONATE [Concomitant]
  8. SPORANOX [Concomitant]
  9. CARBAMAZEPINE [Concomitant]
  10. TERBINAFINE HCL [Concomitant]
     Dosage: 250 MG,
  11. DILTIAZEM [Concomitant]
  12. FLONASE [Concomitant]
  13. NITROGLYCERIN [Concomitant]
  14. FLEXERIL [Concomitant]
  15. INFLUENZA VACCINE [Concomitant]
  16. TEGRETOL [Concomitant]
  17. TOPAMAX [Concomitant]
  18. CYCLOPHOSPHAMIDE [Concomitant]
  19. SPIRONOLACTONE [Concomitant]
  20. IBUPROFEN [Concomitant]

REACTIONS (48)
  - TOOTHACHE [None]
  - SCAR [None]
  - INJURY [None]
  - HAEMORRHOIDS [None]
  - HEADACHE [None]
  - VISUAL FIELD DEFECT [None]
  - CONJUNCTIVITIS [None]
  - SPINAL OSTEOARTHRITIS [None]
  - EXPOSED BONE IN JAW [None]
  - INCONTINENCE [None]
  - EYE INFECTION [None]
  - PHOTOPHOBIA [None]
  - EYELID OEDEMA [None]
  - IRIS ADHESIONS [None]
  - UNRESPONSIVE TO STIMULI [None]
  - EMOTIONAL DISTRESS [None]
  - MOVEMENT DISORDER [None]
  - DENTAL CARIES [None]
  - OSTEOARTHRITIS [None]
  - PAIN [None]
  - ANHEDONIA [None]
  - EYE PAIN [None]
  - STRESS [None]
  - MASTICATION DISORDER [None]
  - ANXIETY [None]
  - PHYSICAL DISABILITY [None]
  - OCULAR HYPERAEMIA [None]
  - GASTROOESOPHAGEAL REFLUX DISEASE [None]
  - OSTEONECROSIS OF JAW [None]
  - AMNESIA [None]
  - HYPOACUSIS [None]
  - DIVERTICULITIS [None]
  - VISION BLURRED [None]
  - CONVULSION [None]
  - PHLEBOLITH [None]
  - ANAEMIA [None]
  - TOOTH FRACTURE [None]
  - PAIN IN JAW [None]
  - DISCOMFORT [None]
  - LIFE EXPECTANCY SHORTENED [None]
  - VERTIGO [None]
  - SCLERITIS [None]
  - SCOTOMA [None]
  - LOSS OF CONSCIOUSNESS [None]
  - ATELECTASIS [None]
  - RHINITIS ALLERGIC [None]
  - MAMMOGRAM ABNORMAL [None]
  - ONYCHOMYCOSIS [None]
